FAERS Safety Report 5049746-5 (Version None)
Quarter: 2006Q3

REPORT INFORMATION
  Report Type: 
  Country: None (occurrence: None)
  Receive Date: 20060707
  Receipt Date: 20060623
  Transmission Date: 20061208
  Serious: Yes (Hospitalization)
  Sender: FDA-Public Use
  Company Number: 2006BI003725

PATIENT
  Age: 66 Year
  Sex: Female
  Weight: 59.4212 kg

DRUGS (9)
  1. AVONEX [Suspect]
     Indication: MULTIPLE SCLEROSIS
     Dosage: 30 UG; QW; IM
     Route: 030
     Dates: start: 19980101, end: 20040101
  2. AVONEX [Suspect]
     Indication: MULTIPLE SCLEROSIS
     Dosage: 30 UG; QW; IM
     Route: 030
     Dates: start: 20040101, end: 20060207
  3. AVONEX [Suspect]
     Indication: MULTIPLE SCLEROSIS
     Dosage: 30 UG; QW; IM
     Route: 030
     Dates: start: 20060301
  4. IPROTRAPION ASTHMA [Concomitant]
  5. SINGULAIR [Concomitant]
  6. ALBUTEROL SPIROS [Concomitant]
  7. COMBIVENTS [Concomitant]
  8. HYDROCHLOROTHIAZIDE [Concomitant]
  9. MEVACORE [Concomitant]

REACTIONS (5)
  - BLOOD CHOLESTEROL INCREASED [None]
  - BLOOD PRESSURE DECREASED [None]
  - CARDIAC DISORDER [None]
  - DYSPNOEA [None]
  - PAIN [None]
